FAERS Safety Report 12411854 (Version 3)
Quarter: 2016Q4

REPORT INFORMATION
  Report Type: Report from Study
  Country: FR (occurrence: FR)
  Receive Date: 20160527
  Receipt Date: 20161118
  Transmission Date: 20170207
  Serious: Yes (Other)
  Sender: FDA-Public Use
  Company Number: FR-OTSUKA-2015_014530

PATIENT
  Age: 42 Year
  Sex: Female
  Weight: 57.5 kg

DRUGS (24)
  1. TOLVAPTAN [Suspect]
     Active Substance: TOLVAPTAN
     Dosage: 60 MG, QD (IN MORNING) (DAY36 TO DAY-22)
     Route: 048
     Dates: start: 20151006, end: 20151009
  2. TOLVAPTAN [Suspect]
     Active Substance: TOLVAPTAN
     Dosage: 30 MG, QD (IN EVENING) (DAY-36 TO DAY-22)
     Route: 048
     Dates: start: 20151006, end: 20151009
  3. TOLVAPTAN [Suspect]
     Active Substance: TOLVAPTAN
     Dosage: 30 MG, QD (IN EVENING)
     Route: 048
     Dates: start: 20151119
  4. TOLVAPTAN [Suspect]
     Active Substance: TOLVAPTAN
     Dosage: 90 MG, QD (IN MORNING) (DAY-22 TO DAY-1)
     Route: 048
     Dates: start: 20151028, end: 20151103
  5. TOLVAPTAN [Suspect]
     Active Substance: TOLVAPTAN
     Dosage: 90 MG, QD (IN MORNING) (DAY-22 TO DAY-1)
     Route: 048
     Dates: start: 20151104, end: 20151118
  6. TOLVAPTAN [Suspect]
     Active Substance: TOLVAPTAN
     Dosage: 30 MG, QD (IN EVENING) (DAY-22 TO DAY-1)
     Route: 048
     Dates: start: 20151104, end: 20151118
  7. TOLVAPTAN [Suspect]
     Active Substance: TOLVAPTAN
     Dosage: 15 MG, QD (IN EVENING)  (DAY-36 TO DAY-22)
     Route: 048
     Dates: start: 20150930, end: 20151002
  8. TOLVAPTAN [Suspect]
     Active Substance: TOLVAPTAN
     Dosage: 45 MG, QD (IN MORNING) (DAY-36 TO DAY-22)
     Route: 048
     Dates: start: 20151003, end: 20151005
  9. TOLVAPTAN [Suspect]
     Active Substance: TOLVAPTAN
     Indication: CONGENITAL CYSTIC KIDNEY DISEASE
     Dosage: 180 MG, QD (IN MORNING) (DAY-22 TO DAY-1)
     Route: 048
     Dates: start: 20151014, end: 20151027
  10. TOLVAPTAN [Suspect]
     Active Substance: TOLVAPTAN
     Dosage: 90 MG, QD (IN MORNING) (DAY-36 TO DAY-22)
     Route: 048
     Dates: start: 20151010, end: 20151013
  11. ATORVASTATIN [Concomitant]
     Active Substance: ATORVASTATIN
     Indication: BLOOD CHOLESTEROL
     Dosage: 30 MG, QD
     Route: 048
     Dates: start: 2005
  12. TOLVAPTAN [Suspect]
     Active Substance: TOLVAPTAN
     Dosage: 15 MG, QD (IN EVENING) (DAY-43 TO DAY-36)
     Route: 048
     Dates: start: 20150922, end: 20150929
  13. TOLVAPTAN [Suspect]
     Active Substance: TOLVAPTAN
     Dosage: 15 MG, QD (IN EVENING) (DAY-36 TO DAY-DAY-22)
     Route: 048
     Dates: start: 20151003, end: 20151005
  14. COLECALCIFEROL [Concomitant]
     Active Substance: CHOLECALCIFEROL
     Indication: PROPHYLAXIS
     Dosage: 100000 IU (ONE PER MONTH), UNK
     Route: 048
     Dates: start: 201311
  15. COLECALCIFEROL [Concomitant]
     Active Substance: CHOLECALCIFEROL
     Indication: VITAMIN D DEFICIENCY
  16. TOLVAPTAN [Suspect]
     Active Substance: TOLVAPTAN
     Dosage: 30 MG, QD (IN EVENING) (DAY-36 TO DAY-22)
     Route: 048
     Dates: start: 20151010, end: 20151013
  17. TOLVAPTAN [Suspect]
     Active Substance: TOLVAPTAN
     Dosage: 30 MG, QD (IN EVENING) (DAY-22 TO DAY-1)
     Route: 048
     Dates: start: 20151028, end: 20151103
  18. OLMESARTAN [Concomitant]
     Active Substance: OLMESARTAN
     Indication: HYPERTENSION
     Dosage: 40 MG, QD
     Route: 048
     Dates: start: 2012
  19. AMLODIPINE [Concomitant]
     Active Substance: AMLODIPINE BESYLATE
     Indication: HYPERTENSION
     Dosage: 5 MG, QD
     Route: 048
     Dates: start: 2012
  20. NEBIVOLOL. [Concomitant]
     Active Substance: NEBIVOLOL
     Indication: HYPERTENSION
     Dosage: 5 MG, QD
     Route: 048
     Dates: start: 2012
  21. TOLVAPTAN [Suspect]
     Active Substance: TOLVAPTAN
     Dosage: 60 MG, QD (IN EVENING) (DAY-22 TO DAY-1)
     Route: 048
     Dates: start: 20151014, end: 20151027
  22. TOLVAPTAN [Suspect]
     Active Substance: TOLVAPTAN
     Dosage: 15 MG, QD (IN MORNING) (DAY-43 TO DAY-36)
     Route: 048
     Dates: start: 20150922, end: 20150929
  23. TOLVAPTAN [Suspect]
     Active Substance: TOLVAPTAN
     Dosage: 30 MG, QD (IN MORNING) (DAY-36 TO DAY-22)
     Route: 048
     Dates: start: 20150930, end: 20151002
  24. TOLVAPTAN [Suspect]
     Active Substance: TOLVAPTAN
     Dosage: 60 MG, QD (IN MORNING)
     Route: 048
     Dates: start: 20151119

REACTIONS (3)
  - Dry throat [Recovered/Resolved]
  - Extra dose administered [Recovered/Resolved]
  - Dry mouth [Recovered/Resolved]

NARRATIVE: CASE EVENT DATE: 20151014
